FAERS Safety Report 17724252 (Version 1)
Quarter: 2020Q2

REPORT INFORMATION
  Report Type: Spontaneous
  Country: US (occurrence: US)
  Receive Date: 20200429
  Receipt Date: 20200429
  Transmission Date: 20200714
  Serious: No
  Sender: FDA-Public Use
  Company Number: US-VERTEX PHARMACEUTICALS-2020-009591

PATIENT
  Sex: Female
  Weight: 71 kg

DRUGS (1)
  1. TRIKAFTA [Suspect]
     Active Substance: ELEXACAFTOR\IVACAFTOR\TEZACAFTOR
     Indication: CYSTIC FIBROSIS
     Dosage: 2 TABLETS (100MG ELEXACAFTOR/ 50MG TEZACAFTOR/ 75 MG IVACAFTOR) AM AND 1 TABLET (150 MG IVACAFTOR) P
     Route: 048

REACTIONS (1)
  - Cough [Unknown]

NARRATIVE: CASE EVENT DATE: 2020
